FAERS Safety Report 18501503 (Version 1)
Quarter: 2020Q4

REPORT INFORMATION
  Report Type: Spontaneous
  Country: US (occurrence: US)
  Receive Date: 20201113
  Receipt Date: 20201113
  Transmission Date: 20210114
  Serious: No
  Sender: FDA-Public Use
  Company Number: None

PATIENT
  Sex: Male

DRUGS (6)
  1. ELIQUIS [Concomitant]
     Active Substance: APIXABAN
     Dates: start: 20200909
  2. OXYCODONE SOL 5MG/5ML [Concomitant]
     Dates: start: 20170509
  3. CABOMETYX [Suspect]
     Active Substance: CABOZANTINIB S-MALATE
  4. LORAZEPAM CON 2MG/ML [Concomitant]
     Active Substance: LORAZEPAM
     Dates: start: 20170509
  5. ADVIL TAB 200MG [Concomitant]
     Dates: start: 20170509
  6. LEVOTHYROXIN TAB 88MOG [Concomitant]
     Dates: start: 20200707

REACTIONS (1)
  - Diarrhoea [None]
